FAERS Safety Report 17827651 (Version 4)
Quarter: 2020Q4

REPORT INFORMATION
  Report Type: Spontaneous
  Country: JP (occurrence: JP)
  Receive Date: 20200527
  Receipt Date: 20201228
  Transmission Date: 20210113
  Serious: Yes (Hospitalization, Other)
  Sender: FDA-Public Use
  Company Number: JP-ASTELLAS-2020JP007034

PATIENT
  Age: 83 Year
  Sex: Male
  Weight: 54 kg

DRUGS (32)
  1. XTANDI [Suspect]
     Active Substance: ENZALUTAMIDE
     Indication: PROSTATE CANCER
     Route: 048
     Dates: start: 20191226, end: 20200203
  2. PREDONINE [Concomitant]
     Active Substance: PREDNISOLONE
     Indication: PROSTATE CANCER
     Route: 048
     Dates: start: 20191227, end: 20200102
  3. NKS 1 [Concomitant]
     Dosage: 60 MG, TWICE DAILY, 4 TIMES A WEEK
     Route: 048
     Dates: start: 20200511, end: 20200518
  4. CEFTRIAXONE NA [Concomitant]
     Active Substance: CEFTRIAXONE
     Indication: PYREXIA
     Route: 042
     Dates: start: 20200522, end: 20200522
  5. MAGMITT [Concomitant]
     Active Substance: MAGNESIUM OXIDE
     Indication: PROPHYLAXIS
     Route: 048
  6. ABIRATERONE ACETATE. [Concomitant]
     Active Substance: ABIRATERONE ACETATE
     Indication: PROSTATE CANCER METASTATIC
     Dosage: UNK UNK, UNKNOWN FREQ.
     Route: 065
  7. GONAX [Concomitant]
     Active Substance: DEGARELIX
     Indication: PROSTATE CANCER
     Route: 058
     Dates: start: 20181213
  8. TAMSULOSIN HYDROCHLORIDE OD [Concomitant]
     Active Substance: TAMSULOSIN HYDROCHLORIDE
     Indication: PROSTATE CANCER
     Dosage: 0.2 MG, ONCE DAILY
     Route: 048
     Dates: start: 20190110
  9. CEFMETAZOLE NA [Concomitant]
     Active Substance: CEFMETAZOLE
     Indication: SURGERY
     Route: 042
     Dates: start: 20200204, end: 20200205
  10. POPSCAINE [Concomitant]
     Active Substance: LEVOBUPIVACAINE HYDROCHLORIDE
     Indication: SURGERY
     Route: 042
     Dates: start: 20200204, end: 20200204
  11. LINZESS [Concomitant]
     Active Substance: LINACLOTIDE
     Indication: CONSTIPATION
     Dosage: 0.5 MG, ONCE DAILY
     Route: 048
     Dates: start: 20190404
  12. CEFTRIAXONE NA [Concomitant]
     Active Substance: CEFTRIAXONE
     Indication: URINARY TRACT INFECTION
     Route: 041
     Dates: start: 20200424, end: 20200428
  13. SENNOSIDE A [Concomitant]
     Active Substance: SENNOSIDE A
     Indication: CONSTIPATION
     Route: 048
  14. AVASTIN [Suspect]
     Active Substance: BEVACIZUMAB
     Indication: COLON CANCER
     Route: 042
     Dates: start: 20200406, end: 20200601
  15. PREDONINE [Concomitant]
     Active Substance: PREDNISOLONE
     Route: 048
     Dates: start: 20200104, end: 20200110
  16. BROMHEXINE HYDROCHLORIDE [Concomitant]
     Active Substance: BROMHEXINE HYDROCHLORIDE
     Indication: PROPHYLAXIS
     Route: 050
     Dates: start: 20200202, end: 20200202
  17. ANAPEINE [Concomitant]
     Active Substance: ROPIVACAINE HYDROCHLORIDE
     Indication: SURGERY
     Route: 042
     Dates: start: 20200206, end: 20200206
  18. ACETAMINOPHEN. [Concomitant]
     Active Substance: ACETAMINOPHEN
     Indication: PYREXIA
     Route: 048
     Dates: start: 20200522
  19. GLYCERIN ADULT [Concomitant]
     Active Substance: GLYCERIN
     Indication: CONSTIPATION
     Route: 054
     Dates: start: 20200202, end: 20200202
  20. FENTANYL. [Concomitant]
     Active Substance: FENTANYL
     Indication: SURGERY
     Dosage: 0.6 MG, ONCE DAILY
     Route: 042
     Dates: start: 20200204, end: 20200204
  21. NKS 1 [Concomitant]
     Indication: COLON CANCER
     Dosage: 60 MG, TWICE DAILY, 4 TIMES A WEEK
     Route: 048
     Dates: start: 20200406, end: 20200420
  22. OLMESARTAN OD [Concomitant]
     Active Substance: OLMESARTAN MEDOXOMIL
     Indication: HYPERTENSION
     Route: 048
  23. XTANDI [Suspect]
     Active Substance: ENZALUTAMIDE
     Dosage: UNK UNK, UNKNOWN FREQ.
     Route: 048
     Dates: start: 20200213, end: 20200423
  24. XTANDI [Suspect]
     Active Substance: ENZALUTAMIDE
     Dosage: UNK UNK, UNKNOWN FREQ.
     Route: 048
     Dates: start: 20200428, end: 20200520
  25. AZULENE [Concomitant]
     Active Substance: AZULENE
     Indication: DENTAL DISORDER PROPHYLAXIS
     Dosage: ADEQUATE DOSE, 5 TIMES A DAY
     Route: 048
     Dates: start: 20200203
  26. PROPETO [Concomitant]
     Active Substance: PETROLATUM
     Indication: DENTAL DISORDER PROPHYLAXIS
     Dosage: ADEQUATE DOSE, AS NEEDED
     Route: 061
     Dates: start: 20200203
  27. LEVOFLOXACIN HEMIHYDRATE [Concomitant]
     Active Substance: LEVOFLOXACIN
     Indication: PYREXIA
     Route: 048
     Dates: start: 20200428, end: 20200507
  28. LEVOFLOXACIN HEMIHYDRATE [Concomitant]
     Active Substance: LEVOFLOXACIN
     Route: 048
     Dates: start: 20200521, end: 20200529
  29. AMLODIPINE [Concomitant]
     Active Substance: AMLODIPINE BESYLATE
     Indication: HYPERTENSION
     Route: 048
  30. FELBINAC [Concomitant]
     Active Substance: FELBINAC
     Indication: FALL
     Dosage: 1 PATCH, ONCE DAILY
     Route: 003
     Dates: start: 20200202, end: 20200209
  31. BICALUTAMIDE OD [Concomitant]
     Indication: PROSTATE CANCER
     Route: 048
     Dates: start: 20200521
  32. OMEPRAZOLE. [Concomitant]
     Active Substance: OMEPRAZOLE
     Indication: PROPHYLAXIS
     Route: 048

REACTIONS (12)
  - Colon cancer [Recovering/Resolving]
  - Cerebral infarction [Recovering/Resolving]
  - Urinary tract infection [Recovering/Resolving]
  - Fall [Recovering/Resolving]
  - Pyrexia [Recovering/Resolving]
  - Loss of consciousness [Recovered/Resolved]
  - Constipation [Recovering/Resolving]
  - Fall [Recovering/Resolving]
  - Urinary tract infection [Recovering/Resolving]
  - Off label use [Unknown]
  - Delirium [Recovering/Resolving]
  - Device related infection [Recovering/Resolving]

NARRATIVE: CASE EVENT DATE: 20191226
